FAERS Safety Report 5008364-5 (Version None)
Quarter: 2006Q2

REPORT INFORMATION
  Report Type: 
  Country: None (occurrence: None)
  Receive Date: 20060523
  Receipt Date: 20060509
  Transmission Date: 20061013
  Serious: Yes (Other)
  Sender: FDA-Public Use
  Company Number: PHEH2006US06075

PATIENT
  Age: 37 Year
  Sex: Female

DRUGS (6)
  1. ZELNORM [Suspect]
     Indication: CONSTIPATION
     Dosage: 6 MG, BID
     Route: 048
     Dates: start: 20060502
  2. PREVACID [Concomitant]
     Indication: GASTROOESOPHAGEAL REFLUX DISEASE
     Dosage: 30 MG, QAM
     Route: 048
  3. SINGULAIR [Concomitant]
     Indication: ASTHMA
     Dosage: 10 MG QAM
     Route: 048
  4. BACLOFEN [Concomitant]
     Indication: CEREBRAL PALSY
     Dosage: 20 MG AM, 5P HS
     Route: 048
  5. ADVAIR DISKUS 100/50 [Concomitant]
     Indication: ASTHMA
     Dosage: 100/50  BID
  6. DIAZEPAM [Concomitant]
     Dosage: 2 MG QAM
     Route: 048

REACTIONS (1)
  - CONVULSION [None]
